FAERS Safety Report 6781693-0 (Version None)
Quarter: 2010Q2

REPORT INFORMATION
  Report Type: 
  Country: None (occurrence: None)
  Receive Date: 20100617
  Receipt Date: 20100617
  Transmission Date: 20101027
  Serious: Yes (Other)
  Sender: FDA-Public Use
  Company Number: None

PATIENT
  Sex: Female
  Weight: 56.246 kg

DRUGS (3)
  1. LEVAQUIN [Suspect]
     Indication: GASTROINTESTINAL INFECTION
     Dosage: ONE PILL DAILY PO
     Route: 048
     Dates: start: 20100611, end: 20100616
  2. LEVAQUIN [Suspect]
     Indication: SINUSITIS
     Dosage: ONE PILL DAILY PO
     Route: 048
     Dates: start: 20100611, end: 20100616
  3. COLAZAL [Suspect]
     Indication: COLITIS ULCERATIVE
     Dosage: THREE PILLS THREE TIMES/DAY PO
     Route: 048
     Dates: start: 20100126, end: 20100606

REACTIONS (4)
  - COLITIS ULCERATIVE [None]
  - CONDITION AGGRAVATED [None]
  - HYPERTENSION [None]
  - TENDONITIS [None]
